FAERS Safety Report 23654699 (Version 1)
Quarter: 2024Q1

REPORT INFORMATION
  Report Type: Spontaneous
  Country: CN (occurrence: CN)
  Receive Date: 20240320
  Receipt Date: 20240320
  Transmission Date: 20240410
  Serious: Yes (Other)
  Sender: FDA-Public Use
  Company Number: CN-BAYER-2024A040682

PATIENT
  Age: 57 Year
  Sex: Female
  Weight: 75 kg

DRUGS (1)
  1. GLUCOBAY [Suspect]
     Active Substance: ACARBOSE
     Indication: Diabetes mellitus inadequate control
     Dosage: 25 MG, 6ID
     Route: 045
     Dates: start: 20240307, end: 20240312

REACTIONS (4)
  - Intestinal obstruction [Recovering/Resolving]
  - Abdominal distension [Recovering/Resolving]
  - Off label use [None]
  - Maternal exposure during pregnancy [None]

NARRATIVE: CASE EVENT DATE: 20240307
